FAERS Safety Report 23833297 (Version 2)
Quarter: 2024Q2

REPORT INFORMATION
  Report Type: Report from Study
  Country: GB (occurrence: GB)
  Receive Date: 20240508
  Receipt Date: 20240510
  Transmission Date: 20240715
  Serious: No
  Sender: FDA-Public Use
  Company Number: GB-SANDOZ-SDZ2024GB046323

PATIENT
  Sex: Male

DRUGS (1)
  1. HYRIMOZ [Suspect]
     Active Substance: ADALIMUMAB-ADAZ
     Indication: Psoriatic arthropathy
     Dosage: UNK
     Route: 065
     Dates: start: 202310

REACTIONS (3)
  - Product use issue [Unknown]
  - Device leakage [Unknown]
  - Device issue [Unknown]
